FAERS Safety Report 9908166 (Version 1)
Quarter: 2013Q2

REPORT INFORMATION
  Report Type: Spontaneous
  Country: US (occurrence: None)
  Receive Date: 20130305
  Receipt Date: 20130305
  Transmission Date: 20140414
  Serious: Yes (Hospitalization)
  Sender: FDA-Public Use
  Company Number: 163-21880-12071417

PATIENT
  Age: 63 Year
  Sex: Male
  Weight: 111.13 kg

DRUGS (14)
  1. REVLIMID (LENALIDOMIDE) (CAPSULES) [Suspect]
     Indication: PLASMA CELL MYELOMA
     Dosage: X 3 WEEKS THEN 1 WEEK OFF
     Route: 048
     Dates: start: 20120609
  2. MORPHINE [Concomitant]
  3. PROCHLORPERAZINE [Concomitant]
  4. ALLOPURINOL [Concomitant]
  5. MAGNESIUM OXIDE [Concomitant]
  6. GLUCOSAMINE CHONDROITIN (GLUCOSAMINE W/CHONDROITIN SULFATE) [Concomitant]
  7. CALCIUM [Concomitant]
  8. RED YEAST RICE [Concomitant]
  9. POTASSIUM GLUCONATE [Concomitant]
  10. ECOTRIN (ACETYLSALICYLIC ACID) [Concomitant]
  11. NEXIUM (ESOMEPRAZOLE) [Concomitant]
  12. METFORMIN [Concomitant]
  13. GLIMEPIRIDE [Concomitant]
  14. LISINOPRIL [Concomitant]

REACTIONS (3)
  - Pneumonia [None]
  - Renal failure [None]
  - Rash [None]
